FAERS Safety Report 5699202-6 (Version None)
Quarter: 2008Q2

REPORT INFORMATION
  Report Type: 
  Country: None (occurrence: None)
  Receive Date: 20080407
  Receipt Date: 20080331
  Transmission Date: 20081010
  Serious: Yes (Hospitalization)
  Sender: FDA-Public Use
  Company Number: 2008SP006043

PATIENT
  Age: 51 Year
  Sex: Female
  Weight: 41.8 kg

DRUGS (9)
  1. PEG-INTRON [Suspect]
     Indication: HEPATITIS C
     Dosage: 64 MCG, QW; SC
     Route: 058
     Dates: start: 20080111, end: 20080321
  2. REBETOL [Suspect]
     Indication: HEPATITIS C
     Dosage: 200 MG; BID; PO
     Route: 048
     Dates: start: 20080111, end: 20080318
  3. CYCLOSPORINE [Concomitant]
  4. URSODIOL [Concomitant]
  5. BENAZEPRIL /00909102/ [Concomitant]
  6. PANTOPRAZOLE SODIUM [Concomitant]
  7. LEVOTHYROXINE SODIUM [Concomitant]
  8. SLOW-MAG [Concomitant]
  9. ROPINIROLE HCL [Concomitant]

REACTIONS (6)
  - CONFUSIONAL STATE [None]
  - CONVULSION [None]
  - HYPONATRAEMIA [None]
  - HYPOTENSION [None]
  - MENTAL STATUS CHANGES [None]
  - ORAL INTAKE REDUCED [None]
